FAERS Safety Report 17864300 (Version 1)
Quarter: 2020Q2

REPORT INFORMATION
  Report Type: Spontaneous
  Country: US (occurrence: US)
  Receive Date: 20200604
  Receipt Date: 20200604
  Transmission Date: 20200714
  Serious: Yes (Life-Threatening, Hospitalization, Disabling)
  Sender: FDA-Public Use
  Company Number: None

PATIENT
  Age: 66 Year
  Sex: Male

DRUGS (2)
  1. WARFARIN [Suspect]
     Active Substance: WARFARIN
     Route: 048
  2. ENOXAPARIN [Suspect]
     Active Substance: ENOXAPARIN
     Route: 048

REACTIONS (4)
  - Cerebrovascular accident [None]
  - Haemoglobin decreased [None]
  - International normalised ratio decreased [None]
  - Muscle haemorrhage [None]

NARRATIVE: CASE EVENT DATE: 20200416
